FAERS Safety Report 10366247 (Version 2)
Quarter: 2016Q1

REPORT INFORMATION
  Report Type: Spontaneous
  Country: US (occurrence: US)
  Receive Date: 20140806
  Receipt Date: 20160202
  Transmission Date: 20160525
  Serious: No
  Sender: FDA-Public Use
  Company Number: US-TEVA-500284USA

PATIENT
  Age: 60 Year
  Sex: Female

DRUGS (2)
  1. COPAXONE [Suspect]
     Active Substance: GLATIRAMER ACETATE
     Indication: MULTIPLE SCLEROSIS
     Dates: start: 2006, end: 201403
  2. COPAXONE [Suspect]
     Active Substance: GLATIRAMER ACETATE
     Dates: start: 20140701

REACTIONS (6)
  - Neuropathy peripheral [Unknown]
  - Injection site haemorrhage [Unknown]
  - Feeling hot [Recovered/Resolved]
  - Skin induration [Not Recovered/Not Resolved]
  - Injection site mass [Unknown]
  - Corneal scar [Unknown]

NARRATIVE: CASE EVENT DATE: 201403
